FAERS Safety Report 12197800 (Version 1)
Quarter: 2016Q1

REPORT INFORMATION
  Report Type: Spontaneous
  Country: US (occurrence: None)
  Receive Date: 20160321
  Receipt Date: 20160321
  Transmission Date: 20160526
  Serious: Yes (Other)
  Sender: FDA-Public Use
  Company Number: None

PATIENT
  Age: 23 Year
  Sex: Male
  Weight: 99.79 kg

DRUGS (1)
  1. EPIDUO [Suspect]
     Active Substance: ADAPALENE\BENZOYL PEROXIDE
     Indication: ACNE
     Dosage: 1 PUMP PER AREA ONCE DAILY APPLIED TO A SURFACE, USUALLY THE SKIN
     Dates: start: 20150315, end: 20160319

REACTIONS (6)
  - Application site erythema [None]
  - Application site discolouration [None]
  - Pain [None]
  - Application site warmth [None]
  - Application site swelling [None]
  - Pruritus [None]

NARRATIVE: CASE EVENT DATE: 20160319
